FAERS Safety Report 15937696 (Version 1)
Quarter: 2019Q1

REPORT INFORMATION
  Report Type: Spontaneous
  Country: US (occurrence: US)
  Receive Date: 20190208
  Receipt Date: 20190208
  Transmission Date: 20190417
  Serious: Yes (Hospitalization)
  Sender: FDA-Public Use
  Company Number: None

PATIENT
  Sex: Male

DRUGS (4)
  1. FERROUS SULF, CLYCOPYRROL, VALIUM, BACLOFEN, NYSTATIN [Concomitant]
  2. MOMETASONE, POLY VI SOL, CALCIUM, TYLENOL [Concomitant]
  3. MULTIVITAMIN, COLACE, PEPCID, KEPPRA, CALCIUM [Concomitant]
  4. CEREZYME [Suspect]
     Active Substance: IMIGLUCERASE
     Indication: GAUCHER^S DISEASE
     Dosage: ?          OTHER FREQUENCY:AS DIRECTED BY PHY;OTHER ROUTE:INTRAVENOUS?
     Dates: start: 20140530

REACTIONS (2)
  - Renal failure [None]
  - Hypernatraemia [None]
